FAERS Safety Report 5781486-7 (Version None)
Quarter: 2008Q2

REPORT INFORMATION
  Report Type: 
  Country: None (occurrence: None)
  Receive Date: 20080623
  Receipt Date: 20080612
  Transmission Date: 20081010
  Serious: Yes (Hospitalization, Other)
  Sender: FDA-Public Use
  Company Number: GB-BAXTER-2008BH005026

PATIENT
  Age: 29 Year
  Sex: Female
  Weight: 65 kg

DRUGS (16)
  1. EXTRANEAL [Suspect]
     Indication: PERITONEAL DIALYSIS
     Route: 033
     Dates: start: 20070813
  2. EXTRANEAL [Suspect]
     Route: 033
     Dates: start: 20070813
  3. DIANEAL [Suspect]
     Indication: PERITONEAL DIALYSIS
     Route: 033
     Dates: start: 20070813
  4. DIANEAL [Suspect]
     Route: 033
     Dates: start: 20070813
  5. ADCAL [Concomitant]
     Route: 048
     Dates: start: 20071118
  6. SENNA [Concomitant]
     Route: 048
     Dates: start: 20071118
  7. SIMVASTATIN [Concomitant]
     Route: 048
     Dates: start: 20071118
  8. IRBESARTAN [Concomitant]
     Route: 048
     Dates: start: 20080305
  9. RAMIPRIL [Concomitant]
     Route: 048
     Dates: start: 20080305
  10. EPOETIN BETA [Concomitant]
     Route: 058
     Dates: start: 20080305
  11. ALFACALCIDOL [Concomitant]
     Route: 048
     Dates: start: 20080409
  12. PREDNISOLONE [Concomitant]
     Dates: start: 20080414
  13. AMLODIPINE [Concomitant]
     Dates: start: 20080522
  14. ATENOLOL [Concomitant]
     Route: 048
     Dates: start: 20080522
  15. DOXAZOSIN MESYLATE [Concomitant]
     Dates: start: 20080522
  16. DOCUSATE SODIUM [Concomitant]
     Dates: start: 20080502

REACTIONS (2)
  - NAUSEA [None]
  - PERITONITIS BACTERIAL [None]
